FAERS Safety Report 22058802 (Version 1)
Quarter: 2023Q1

REPORT INFORMATION
  Report Type: Report from Study
  Country: US (occurrence: US)
  Receive Date: 20230303
  Receipt Date: 20230303
  Transmission Date: 20230418
  Serious: Yes (Other)
  Sender: FDA-Public Use
  Company Number: US-BAYER-2023A025629

PATIENT
  Age: 73 Year
  Sex: Female

DRUGS (2)
  1. ASPIRIN [Suspect]
     Active Substance: ASPIRIN
     Indication: Thrombocytosis
     Dosage: UNK
  2. WARFARIN [Suspect]
     Active Substance: WARFARIN

REACTIONS (3)
  - Haemorrhage [None]
  - Labelled drug-drug interaction medication error [None]
  - Off label use [None]
